FAERS Safety Report 20742063 (Version 1)
Quarter: 2022Q2

REPORT INFORMATION
  Report Type: Spontaneous
  Country: CN (occurrence: CN)
  Receive Date: 20220423
  Receipt Date: 20220423
  Transmission Date: 20220721
  Serious: No
  Sender: FDA-Public Use
  Company Number: CN-LUPIN PHARMACEUTICALS INC.-2022-06002

PATIENT
  Age: 11 Year
  Sex: Female
  Weight: 36 kg

DRUGS (3)
  1. METFORMIN [Suspect]
     Active Substance: METFORMIN HYDROCHLORIDE
     Indication: Metabolic syndrome
     Dosage: 1 GRAM, QD
     Route: 048
  2. PIOGLITAZONE [Suspect]
     Active Substance: PIOGLITAZONE
     Indication: Metabolic syndrome
     Dosage: 15 MG, QD
     Route: 065
  3. FLUTAMIDE [Suspect]
     Active Substance: FLUTAMIDE
     Indication: Hyperandrogenism
     Dosage: UNK
     Route: 065

REACTIONS (1)
  - Off label use [Unknown]
